FAERS Safety Report 15709010 (Version 3)
Quarter: 2019Q4

REPORT INFORMATION
  Report Type: Spontaneous
  Country: CA (occurrence: CA)
  Receive Date: 20181211
  Receipt Date: 20191016
  Transmission Date: 20200122
  Serious: Yes (Death, Other)
  Sender: FDA-Public Use
  Company Number: CA-TEVA-2018-CA-986183

PATIENT
  Age: 75 Year
  Sex: Female

DRUGS (14)
  1. WELLBUTRIN XL [Concomitant]
     Active Substance: BUPROPION HYDROCHLORIDE
  2. SILDENAFIL CITRATE. [Suspect]
     Active Substance: SILDENAFIL CITRATE
     Indication: PULMONARY ARTERIAL HYPERTENSION
     Route: 048
  3. PANTOLOC [Concomitant]
     Active Substance: PANTOPRAZOLE SODIUM
  4. ALLOPURINOL. [Concomitant]
     Active Substance: ALLOPURINOL
  5. APO-PANTOPRAZOLE [Concomitant]
     Active Substance: PANTOPRAZOLE SODIUM
  6. FERROUS FUMARATE [Concomitant]
     Active Substance: FERROUS FUMARATE
  7. POTASSIUM [Concomitant]
     Active Substance: POTASSIUM
  8. UPTRAVI [Concomitant]
     Active Substance: SELEXIPAG
     Dosage: 1200 MICROGRAM DAILY;
  9. BUPROPION. [Concomitant]
     Active Substance: BUPROPION
  10. ATORVASTATIN [Concomitant]
     Active Substance: ATORVASTATIN
  11. QUETIAPINE FUMARATE. [Concomitant]
     Active Substance: QUETIAPINE FUMARATE
  12. FUROSEMIDE. [Concomitant]
     Active Substance: FUROSEMIDE
  13. SYNTHROID [Concomitant]
     Active Substance: LEVOTHYROXINE SODIUM
  14. ZYLOPRIM [Concomitant]
     Active Substance: ALLOPURINOL

REACTIONS (5)
  - Muscle spasms [Fatal]
  - Insomnia [Fatal]
  - Myalgia [Fatal]
  - Back pain [Fatal]
  - Death [Fatal]
